FAERS Safety Report 8198575-2 (Version None)
Quarter: 2012Q1

REPORT INFORMATION
  Report Type: 
  Country: None (occurrence: None)
  Receive Date: 20120309
  Receipt Date: 20111227
  Transmission Date: 20120608
  Serious: No
  Sender: FDA-Public Use
  Company Number: US-AMGEN-USASP2011069362

PATIENT
  Age: 64 Year
  Sex: Female

DRUGS (5)
  1. PROLIA [Suspect]
     Indication: OSTEOPOROSIS POSTMENOPAUSAL
     Dosage: 60 MG, Q6MO
     Route: 058
     Dates: start: 20111201
  2. SYNTHROID [Concomitant]
     Dosage: 0.100 MUG, 6 TIMES/WK
  3. ATENOLOL [Concomitant]
     Dosage: UNK
  4. FISH OIL [Concomitant]
     Dosage: UNK
  5. SYNTHROID [Concomitant]
     Dosage: 0.05 MUG, QWK

REACTIONS (3)
  - BLOOD THYROID STIMULATING HORMONE DECREASED [None]
  - ALANINE AMINOTRANSFERASE INCREASED [None]
  - MALAISE [None]
